FAERS Safety Report 6392052-7 (Version None)
Quarter: 2009Q4

REPORT INFORMATION
  Report Type: 
  Country: None (occurrence: None)
  Receive Date: 20091007
  Receipt Date: 20091002
  Transmission Date: 20100525
  Serious: Yes (Hospitalization)
  Sender: FDA-Public Use
  Company Number: IT-ROCHE-660410

PATIENT
  Sex: Male

DRUGS (4)
  1. VALIUM [Suspect]
     Indication: PROPHYLAXIS AGAINST PSYCHOMOTOR AGITATION
     Dosage: FREQUENCY 15 DROPS DAILY.
     Route: 048
     Dates: start: 20090924, end: 20090929
  2. LUMINALE [Suspect]
     Indication: POST-TRAUMATIC EPILEPSY
     Route: 048
     Dates: start: 20090925, end: 20090929
  3. ARIXTRA [Concomitant]
     Indication: THROMBOSIS PROPHYLAXIS
     Dosage: FREQUENCY UNKNOWN.
     Route: 058
     Dates: start: 20090924, end: 20091002
  4. ENSURE PLUS [Concomitant]
     Indication: ENTERAL NUTRITION
     Dosage: DRUG NAME: NUTRITIONAL AGENTS AND VITAMINS.  ROUTE REPORTED: ENDONASAL.
     Route: 006
     Dates: start: 20090924, end: 20091002

REACTIONS (1)
  - RHABDOMYOLYSIS [None]
